FAERS Safety Report 6585903-4 (Version None)
Quarter: 2010Q1

REPORT INFORMATION
  Report Type: 
  Country: None (occurrence: None)
  Receive Date: 20100217
  Receipt Date: 20100211
  Transmission Date: 20100710
  Serious: Yes (Hospitalization)
  Sender: FDA-Public Use
  Company Number: PHHO2010US02193

PATIENT
  Sex: Female
  Weight: 54.5 kg

DRUGS (8)
  1. AFINITOR [Suspect]
     Indication: SARCOMA
     Dosage: 10MG/DAY
     Route: 048
     Dates: start: 20091229, end: 20100204
  2. ATIVAN [Concomitant]
  3. VITAMIN B-12 [Concomitant]
  4. CALCIUM [Concomitant]
  5. CLOBETASOL PROPIONATE [Concomitant]
  6. FISH OIL [Concomitant]
  7. NIACIN [Concomitant]
  8. VITAMIN B COMPLEX CAP [Concomitant]

REACTIONS (5)
  - ABDOMINAL PAIN [None]
  - CONSTIPATION [None]
  - ENTERITIS [None]
  - PROCTITIS [None]
  - RENAL FAILURE [None]
